FAERS Safety Report 7669633-3 (Version None)
Quarter: 2011Q3

REPORT INFORMATION
  Report Type: 
  Country: None (occurrence: None)
  Receive Date: 20110808
  Receipt Date: 20110726
  Transmission Date: 20111222
  Serious: Yes (Hospitalization, Other)
  Sender: FDA-Public Use
  Company Number: PHHY2011BR68265

PATIENT
  Sex: Female

DRUGS (3)
  1. DIOVAN [Suspect]
     Dosage: 160 MG, UNK
  2. SUSTRATE [Concomitant]
     Dosage: UNK UKN, UNK
  3. DIOVAN [Suspect]
     Dosage: 320 MG, UNK

REACTIONS (5)
  - DYSPNOEA [None]
  - DIZZINESS [None]
  - CEREBROVASCULAR ACCIDENT [None]
  - FATIGUE [None]
  - BACK PAIN [None]
